FAERS Safety Report 25660350 (Version 2)
Quarter: 2025Q4

REPORT INFORMATION
  Report Type: Spontaneous
  Country: US (occurrence: US)
  Receive Date: 20250808
  Receipt Date: 20251029
  Transmission Date: 20260117
  Serious: Yes (Hospitalization, Other)
  Sender: BLUEPRINT MEDICINES
  Company Number: US-Blueprint Medicines Corporation-2025-AER-01720

PATIENT
  Age: 74 Year
  Sex: Female

DRUGS (2)
  1. AYVAKIT [Suspect]
     Active Substance: AVAPRITINIB
     Indication: Malignant mast cell neoplasm
     Route: 065
     Dates: start: 20240207
  2. AYVAKIT [Suspect]
     Active Substance: AVAPRITINIB
     Route: 065
     Dates: start: 20240207

REACTIONS (5)
  - Constipation [Unknown]
  - Adrenal mass [Unknown]
  - Urinary tract infection [Unknown]
  - Nausea [Unknown]
  - Fatigue [Unknown]
